FAERS Safety Report 5838693-4 (Version None)
Quarter: 2008Q3

REPORT INFORMATION
  Report Type: 
  Country: None (occurrence: None)
  Receive Date: 20080808
  Receipt Date: 20080730
  Transmission Date: 20090109
  Serious: Yes (Other)
  Sender: FDA-Public Use
  Company Number: B0361227A

PATIENT
  Age: 44 Year
  Sex: Female

DRUGS (2)
  1. SEROXAT [Suspect]
     Route: 065
     Dates: start: 20011123, end: 20021001
  2. DIAZEPAM [Concomitant]
     Dates: start: 20021017

REACTIONS (19)
  - ARTHRALGIA [None]
  - BLADDER INJURY [None]
  - CONFUSIONAL STATE [None]
  - DISTURBANCE IN ATTENTION [None]
  - DIZZINESS [None]
  - HYPERHIDROSIS [None]
  - INCONTINENCE [None]
  - INFLUENZA LIKE ILLNESS [None]
  - LETHARGY [None]
  - MEMORY IMPAIRMENT [None]
  - NAUSEA [None]
  - NIGHTMARE [None]
  - PAIN [None]
  - PARAESTHESIA [None]
  - SUICIDAL IDEATION [None]
  - TREMOR [None]
  - VERTIGO [None]
  - VISUAL ACUITY REDUCED [None]
  - WITHDRAWAL SYNDROME [None]
